FAERS Safety Report 6752394-X (Version None)
Quarter: 2010Q2

REPORT INFORMATION
  Report Type: 
  Country: None (occurrence: None)
  Receive Date: 20100602
  Receipt Date: 20100524
  Transmission Date: 20101027
  Serious: Yes (Hospitalization, Other)
  Sender: FDA-Public Use
  Company Number: US-PFIZER INC-2010065737

PATIENT
  Sex: Female
  Weight: 97 kg

DRUGS (5)
  1. LIPITOR [Suspect]
     Dosage: 80 MG, 1X/DAY
     Route: 048
     Dates: start: 20060101, end: 20100101
  2. PLAVIX [Concomitant]
     Dosage: UNK
  3. LISINOPRIL [Concomitant]
     Dosage: UNK
  4. VERAPAMIL [Concomitant]
     Dosage: UNK
  5. CALCIUM [Concomitant]
     Dosage: UNK

REACTIONS (4)
  - BACK DISORDER [None]
  - CELLULITIS [None]
  - GAIT DISTURBANCE [None]
  - HEPATIC ENZYME INCREASED [None]
